FAERS Safety Report 8502990-4 (Version None)
Quarter: 2012Q3

REPORT INFORMATION
  Report Type: 
  Country: None (occurrence: None)
  Receive Date: 20120711
  Receipt Date: 20120706
  Transmission Date: 20120928
  Serious: Yes (Other)
  Sender: FDA-Public Use
  Company Number: PHFR2012GB002841

PATIENT
  Sex: Male
  Weight: 150 kg

DRUGS (3)
  1. CLOZARIL [Suspect]
     Dosage: 200 MG, UNK
     Route: 048
  2. CLOZARIL [Suspect]
     Indication: SCHIZOPHRENIA
     Dosage: UNK UKN, UNK
     Route: 048
     Dates: start: 20120109
  3. VALPROATE SODIUM [Concomitant]
     Indication: HUNTINGTON'S DISEASE
     Dosage: UNK UKN, UNK
     Route: 048

REACTIONS (5)
  - ANXIETY [None]
  - MALAISE [None]
  - NEUTROPHIL COUNT DECREASED [None]
  - NAUSEA [None]
  - APHASIA [None]
